FAERS Safety Report 9049180 (Version 1)
Quarter: 2013Q1

REPORT INFORMATION
  Report Type: Spontaneous
  Country: CA (occurrence: None)
  Receive Date: 20130130
  Receipt Date: 20130130
  Transmission Date: 20140127
  Serious: Yes (Other)
  Sender: FDA-Public Use
  Company Number: None

PATIENT
  Age: 81 Year
  Sex: Female
  Weight: 63.5 kg

DRUGS (2)
  1. EFUDEX [Suspect]
     Indication: HYPERKERATOSIS
     Dosage: ^THIN LAYER^ 2X DAY FPR 3 WEEKS ALL OVER-FACE
     Dates: start: 20120720, end: 20120808
  2. BLOOD PRESSURE MED [Concomitant]

REACTIONS (2)
  - Diarrhoea [None]
  - Nausea [None]
